FAERS Safety Report 7254142-6 (Version None)
Quarter: 2011Q1

REPORT INFORMATION
  Report Type: 
  Country: None (occurrence: None)
  Receive Date: 20110129
  Receipt Date: 20100215
  Transmission Date: 20110831
  Serious: No
  Sender: FDA-Public Use
  Company Number: US-ABBOTT-10P-163-0626080-00

PATIENT
  Sex: Female
  Weight: 90.8 kg

DRUGS (4)
  1. HUMIRA [Suspect]
     Indication: PSORIASIS
     Route: 058
     Dates: start: 20090701
  2. TWO UNKNOWN EYE DROPS [Concomitant]
     Indication: GLAUCOMA
  3. HUMIRA [Suspect]
     Indication: OSTEOARTHRITIS
  4. MICARDIS [Concomitant]
     Indication: PRODUCT USED FOR UNKNOWN INDICATION

REACTIONS (3)
  - JOINT INJURY [None]
  - ARTHRITIS INFECTIVE [None]
  - JOINT SWELLING [None]
